FAERS Safety Report 23487358 (Version 1)
Quarter: 2024Q1

REPORT INFORMATION
  Report Type: Spontaneous
  Country: IT (occurrence: IT)
  Receive Date: 20240206
  Receipt Date: 20240206
  Transmission Date: 20240410
  Serious: Yes (Other)
  Sender: FDA-Public Use
  Company Number: None

PATIENT
  Age: 83 Year
  Sex: Male

DRUGS (5)
  1. EDOXABAN TOSYLATE [Suspect]
     Active Substance: EDOXABAN TOSYLATE
     Indication: Atrial fibrillation
     Dosage: 60 MG, QD (28 TABLET 60 MG- DOSAGE SCHEDULE: 1 TABLET/DAY)
     Route: 048
     Dates: start: 20210804, end: 202308
  2. OMEPRAZOLE [Concomitant]
     Active Substance: OMEPRAZOLE
     Indication: Gastrointestinal disorder
     Dosage: 10 MG, QD (14 CAPSULE 10 MG- 1 CAPSULE/DAY)
     Route: 048
     Dates: start: 2023
  3. ENALAPRIL MALEATE\HYDROCHLOROTHIAZIDE [Concomitant]
     Active Substance: ENALAPRIL MALEATE\HYDROCHLOROTHIAZIDE
     Indication: Hypertensive heart disease
     Dosage: 1 DF,QD (14 CAPSULE 20/12.5 MG - 1 CAPSULE/DAY)
     Route: 048
     Dates: start: 2023
  4. NORVASC [Concomitant]
     Active Substance: AMLODIPINE BESYLATE
     Indication: Hypertensive heart disease
     Dosage: 0.5 DF, QD (28 5 MG - HALF CP/DAY)
     Route: 048
     Dates: start: 2023
  5. LIPONORM [SIMVASTATIN] [Concomitant]
     Indication: Hypercholesterolaemia
     Dosage: 20 MG, QD (28 CAPSULE 20 MG - 1 CAPSULE/DAY IN EVENING)
     Route: 048
     Dates: start: 2023

REACTIONS (3)
  - Renal failure [Recovered/Resolved]
  - Blood creatinine increased [Recovered/Resolved]
  - Glomerular filtration rate decreased [Recovered/Resolved]

NARRATIVE: CASE EVENT DATE: 20230701
